FAERS Safety Report 4494960-0 (Version None)
Quarter: 2004Q4

REPORT INFORMATION
  Report Type: 
  Country: None (occurrence: None)
  Receive Date: 20041105
  Receipt Date: 20041105
  Transmission Date: 20050328
  Serious: No
  Sender: FDA-Public Use
  Company Number: None

PATIENT
  Sex: Female
  Weight: 88.4514 kg

DRUGS (2)
  1. VIOXX [Suspect]
     Indication: ARTHRALGIA
     Dosage: 1 TAB PO     EVERY DAY    ORAL
     Route: 048
     Dates: start: 19960101, end: 20000101
  2. VIOXX [Suspect]
     Indication: MYALGIA
     Dosage: 1 TAB PO     EVERY DAY    ORAL
     Route: 048
     Dates: start: 19960101, end: 20000101

REACTIONS (5)
  - FEAR [None]
  - HYPERTENSIVE CRISIS [None]
  - INFECTED CYST [None]
  - MORBID THOUGHTS [None]
  - RENAL CYST [None]
